FAERS Safety Report 9334225 (Version 1)
Quarter: 2013Q2

REPORT INFORMATION
  Report Type: Spontaneous
  Country: US (occurrence: US)
  Receive Date: 20130606
  Receipt Date: 20130606
  Transmission Date: 20140414
  Serious: No
  Sender: FDA-Public Use
  Company Number: US-AMGEN-USASP2013027122

PATIENT
  Age: 69 Year
  Sex: Female

DRUGS (6)
  1. PROLIA [Suspect]
     Indication: OSTEOPOROSIS POSTMENOPAUSAL
     Dosage: UNK UNK, Q6MO
     Dates: start: 201201
  2. RAMIPRIL [Concomitant]
  3. CARDIZEM                           /00489701/ [Concomitant]
  4. FOLIC ACID [Concomitant]
  5. VITAMIN B [Concomitant]
  6. VITAMIN D                          /00107901/ [Concomitant]

REACTIONS (4)
  - Immune system disorder [Unknown]
  - Pneumonia [Unknown]
  - General physical health deterioration [Unknown]
  - Eczema [Unknown]
